FAERS Safety Report 7192873-7 (Version None)
Quarter: 2010Q4

REPORT INFORMATION
  Report Type: 
  Country: None (occurrence: None)
  Receive Date: 20101223
  Receipt Date: 20101208
  Transmission Date: 20110411
  Serious: Yes (Hospitalization)
  Sender: FDA-Public Use
  Company Number: JP-BAYER-2010-003127

PATIENT
  Age: 86 Year
  Sex: Male

DRUGS (8)
  1. ASPIRIN [Suspect]
     Indication: PRODUCT USED FOR UNKNOWN INDICATION
     Route: 048
  2. HEPARIN SODIUM [Concomitant]
     Dosage: 3 KIU, TID
     Route: 042
  3. NICORANDIL [Concomitant]
     Route: 042
  4. LISINOPRIL [Concomitant]
     Dosage: 5 MG, QD
     Route: 048
  5. CARVEDILOL [Concomitant]
     Dosage: 2.5 MG, UNK
     Route: 048
  6. LANSOPRAZOLE [Concomitant]
     Dosage: 30 MG, QD
     Route: 048
  7. FERROUS CITRATE [Concomitant]
     Dosage: 100 MG, QD
     Route: 048
  8. ATORVASTATIN CALCIUM [Concomitant]
     Dosage: 5 MG, UNK
     Route: 048

REACTIONS (1)
  - TRAUMATIC HAEMORRHAGE [None]
